FAERS Safety Report 4763686-8 (Version None)
Quarter: 2005Q3

REPORT INFORMATION
  Report Type: 
  Country: None (occurrence: None)
  Receive Date: 20050908
  Receipt Date: 20050831
  Transmission Date: 20060218
  Serious: Yes (Disabling)
  Sender: FDA-Public Use
  Company Number: BR-GLAXOSMITHKLINE-A0572811A

PATIENT
  Age: 53 Year
  Sex: Female
  Weight: 67 kg

DRUGS (2)
  1. BECLOSOL [Suspect]
     Indication: RHINITIS
     Dosage: 50MCG TWICE PER DAY
     Route: 045
     Dates: start: 20050721, end: 20050821
  2. SYMBICORT [Concomitant]
     Dates: start: 20050812

REACTIONS (3)
  - BLINDNESS [None]
  - EYE PRURITUS [None]
  - VISION BLURRED [None]
